FAERS Safety Report 5505102-4 (Version None)
Quarter: 2007Q4

REPORT INFORMATION
  Report Type: 
  Country: None (occurrence: None)
  Receive Date: 20071031
  Receipt Date: 20071031
  Transmission Date: 20080405
  Serious: Yes (Other)
  Sender: FDA-Public Use
  Company Number: None

PATIENT
  Age: 64 Year
  Sex: Male
  Weight: 81.6475 kg

DRUGS (1)
  1. VIAGRA [Suspect]
     Indication: ERECTILE DYSFUNCTION
     Dosage: ONE TABLET ONE PER WEEK PO
     Route: 048
     Dates: start: 19970107, end: 20071021

REACTIONS (3)
  - DEAFNESS TRANSITORY [None]
  - DISORIENTATION [None]
  - TINNITUS [None]
